FAERS Safety Report 5957122-3 (Version None)
Quarter: 2008Q4

REPORT INFORMATION
  Report Type: 
  Country: None (occurrence: None)
  Receive Date: 20081117
  Receipt Date: 20081117
  Transmission Date: 20090506
  Serious: No
  Sender: FDA-Public Use
  Company Number: None

PATIENT
  Age: 54 Year
  Sex: Female
  Weight: 65.318 kg

DRUGS (1)
  1. LAMOTRIGINE [Suspect]
     Indication: VENOUS ANGIOMA OF BRAIN

REACTIONS (1)
  - FATIGUE [None]
